FAERS Safety Report 9796359 (Version 1)
Quarter: 2014Q1

REPORT INFORMATION
  Report Type: Spontaneous
  Country: BR (occurrence: BR)
  Receive Date: 20140103
  Receipt Date: 20140103
  Transmission Date: 20141002
  Serious: Yes (Death, Other)
  Sender: FDA-Public Use
  Company Number: BR-PFIZER INC-2014000533

PATIENT
  Age: 67 Year
  Sex: Male

DRUGS (1)
  1. LYRICA [Suspect]
     Dosage: 2 CAPSULES OF 75MG (150 MG), ONCE DAILY
     Route: 048
     Dates: start: 20120522

REACTIONS (3)
  - Death [Fatal]
  - Pancreatic neoplasm [Unknown]
  - Post procedural complication [Unknown]
